FAERS Safety Report 22173162 (Version 1)
Quarter: 2023Q2

REPORT INFORMATION
  Report Type: Report from Study
  Country: US (occurrence: US)
  Receive Date: 20230404
  Receipt Date: 20230404
  Transmission Date: 20230722
  Serious: Yes (Hospitalization, Other)
  Sender: FDA-Public Use
  Company Number: US-REGENERON PHARMACEUTICALS, INC.-2023-049177

PATIENT
  Sex: Female

DRUGS (1)
  1. CEMIPLIMAB [Suspect]
     Active Substance: CEMIPLIMAB
     Indication: Basal cell carcinoma
     Dosage: UNK
     Route: 042
     Dates: start: 201901

REACTIONS (2)
  - Gastrointestinal disorder [Unknown]
  - Adrenal insufficiency [Unknown]
